FAERS Safety Report 13211839 (Version 1)
Quarter: 2017Q1

REPORT INFORMATION
  Report Type: Spontaneous
  Country: RU (occurrence: RU)
  Receive Date: 20170210
  Receipt Date: 20170210
  Transmission Date: 20170428
  Serious: Yes (Other)
  Sender: FDA-Public Use
  Company Number: RU-SEPTODONT-201703844

PATIENT

DRUGS (1)
  1. SCANDONEST PLAIN [Suspect]
     Active Substance: MEPIVACAINE HYDROCHLORIDE
     Indication: LOCAL ANAESTHESIA
     Dosage: UNKNOWN DOSE
     Route: 004

REACTIONS (2)
  - Dyspnoea [Recovered/Resolved]
  - Loss of consciousness [Recovered/Resolved]
